FAERS Safety Report 9766699 (Version 2)
Quarter: 2014Q1

REPORT INFORMATION
  Report Type: Spontaneous
  Country: US (occurrence: US)
  Receive Date: 20131217
  Receipt Date: 20140130
  Transmission Date: 20141002
  Serious: No
  Sender: FDA-Public Use
  Company Number: US-BIOGENIDEC-2013BI118524

PATIENT
  Age: 53 Year
  Sex: Female

DRUGS (20)
  1. TECFIDERA [Suspect]
     Indication: MULTIPLE SCLEROSIS
     Route: 048
     Dates: start: 20130729
  2. TECFIDERA [Suspect]
     Indication: MULTIPLE SCLEROSIS
     Route: 048
     Dates: start: 20130730, end: 20130805
  3. TECFIDERA [Suspect]
     Indication: MULTIPLE SCLEROSIS
     Route: 048
     Dates: start: 20130806
  4. COUMADIN [Concomitant]
  5. AMITIZA [Concomitant]
  6. BABY ASPIRIN [Concomitant]
  7. BYSTOLIC [Concomitant]
  8. CALTRATE 600 [Concomitant]
  9. CLONAZEPAM [Concomitant]
  10. EFFEXOR XR [Concomitant]
  11. FLOMAX [Concomitant]
  12. LISINOPRIL [Concomitant]
  13. NITROFURANTOIN MACROCRYSTAL [Concomitant]
  14. OXYCODONE HCL [Concomitant]
  15. PRAVASTATIN SODIUM [Concomitant]
  16. PROVIGIL [Concomitant]
  17. TIZANIDINE HCL [Concomitant]
  18. WARFARIN SODIUM [Concomitant]
  19. ZANAFLEX [Concomitant]
  20. ZOFRAN [Concomitant]

REACTIONS (8)
  - Abdominal wall mass [Not Recovered/Not Resolved]
  - Flank pain [Not Recovered/Not Resolved]
  - Abdominal distension [Not Recovered/Not Resolved]
  - Contusion [Recovered/Resolved]
  - Constipation [Not Recovered/Not Resolved]
  - Flushing [Recovered/Resolved]
  - Nausea [Not Recovered/Not Resolved]
  - Erythema [Recovered/Resolved]
